FAERS Safety Report 8976714 (Version 2)
Quarter: 2013Q1

REPORT INFORMATION
  Report Type: Report from Study
  Country: JP (occurrence: JP)
  Receive Date: 20121220
  Receipt Date: 20130321
  Transmission Date: 20140127
  Serious: Yes (Other)
  Sender: FDA-Public Use
  Company Number: JP-BAYER-2012-132065

PATIENT
  Age: 70 Year
  Sex: Male
  Weight: 53 kg

DRUGS (23)
  1. NEXAVAR [Suspect]
     Indication: HEPATOCELLULAR CARCINOMA
     Dosage: 400 MG, QD
     Route: 048
     Dates: start: 20111207, end: 20111212
  2. NEXAVAR [Suspect]
     Indication: HEPATOCELLULAR CARCINOMA
     Dosage: 800 MG, QD
     Dates: start: 20111213, end: 20120106
  3. NEXAVAR [Suspect]
     Indication: HEPATOCELLULAR CARCINOMA
     Dosage: 400 MG, QD
     Dates: start: 20120107, end: 20120111
  4. NEXAVAR [Suspect]
     Indication: HEPATOCELLULAR CARCINOMA
     Dosage: 200 MG, QD
     Dates: start: 20120112, end: 20120412
  5. NEXAVAR [Suspect]
     Indication: HEPATOCELLULAR CARCINOMA
     Dosage: 200 MG, QD
     Dates: start: 20120501, end: 20120607
  6. NEXAVAR [Suspect]
     Indication: HEPATOCELLULAR CARCINOMA
     Dosage: 200 MG, QOD
     Dates: start: 20120608, end: 20120726
  7. NEXAVAR [Suspect]
     Indication: HEPATOCELLULAR CARCINOMA
     Dosage: UNK
     Dates: end: 20120821
  8. OMEPRAL [Concomitant]
     Dosage: DAILY DOSE 20 MG
     Route: 048
     Dates: start: 20111013
  9. URSO [Concomitant]
     Dosage: DAILY DOSE 600 MG
     Route: 048
     Dates: start: 200703
  10. UBRETID [Concomitant]
     Dosage: DAILY DOSE 10 MG
     Route: 048
     Dates: start: 2001
  11. MAINTATE [Concomitant]
     Dosage: DAILY DOSE 2.5 MG
     Route: 048
     Dates: start: 20111207
  12. EPIRUBICIN HYDROCHLORIDE [Concomitant]
     Indication: THERAPEUTIC EMBOLISATION
     Dosage: DAILY DOSE 30 MG
     Route: 013
     Dates: start: 20120418, end: 20120418
  13. LIPIODOL ULTRA-FLUIDE [Concomitant]
     Indication: THERAPEUTIC EMBOLISATION
     Dosage: DAILY DOSE 5 ML
     Route: 013
     Dates: start: 20120418, end: 20120418
  14. LIPIODOL ULTRA-FLUIDE [Concomitant]
     Indication: THERAPEUTIC EMBOLISATION
     Dosage: DAILY DOSE 6 ML
     Route: 013
     Dates: start: 20120801, end: 20120801
  15. PURSENNID [Concomitant]
     Indication: PREMEDICATION
     Dosage: DAILY DOSE 24 MG
     Route: 048
     Dates: start: 20120417, end: 20120417
  16. PURSENNID [Concomitant]
     Indication: PREMEDICATION
     Dosage: DAILY DOSE 2 DF
     Route: 048
     Dates: start: 20120731, end: 20120731
  17. MAGCOROL P [Concomitant]
     Indication: PREMEDICATION
     Dosage: DAILY DOSE 250 ML
     Route: 048
     Dates: start: 20120417, end: 20120417
  18. MAGCOROL P [Concomitant]
     Indication: PREMEDICATION
     Dosage: DAILY DOSE 250 ML
     Route: 048
     Dates: start: 20120731, end: 20120731
  19. CEFMETAZON [Concomitant]
     Dosage: DAILY DOSE 2 G
     Route: 042
     Dates: start: 20120418, end: 20120418
  20. CEFMETAZON [Concomitant]
     Dosage: DAILY DOSE 2 G
     Route: 042
     Dates: start: 20120801, end: 20120804
  21. SOSEGON [Concomitant]
     Indication: THERAPEUTIC EMBOLISATION
     Dosage: DAILY DOSE 15 MG
     Route: 042
     Dates: start: 20120418, end: 20120418
  22. SOSEGON [Concomitant]
     Indication: THERAPEUTIC EMBOLISATION
     Dosage: DAILY DOSE 15 MG
     Route: 042
     Dates: start: 20120801, end: 20120801
  23. IA-CALL [Concomitant]
     Indication: THERAPEUTIC EMBOLISATION
     Dosage: DAILY DOSE 50 MG
     Route: 013
     Dates: start: 20120801, end: 20120801

REACTIONS (8)
  - Hepatic function abnormal [Recovered/Resolved]
  - Ascites [Not Recovered/Not Resolved]
  - Palmar-plantar erythrodysaesthesia syndrome [Recovered/Resolved]
  - Amylase increased [Recovered/Resolved]
  - Diarrhoea [Recovered/Resolved]
  - Diarrhoea [Recovering/Resolving]
  - Diarrhoea [Recovering/Resolving]
  - Hypoalbuminaemia [Not Recovered/Not Resolved]
